FAERS Safety Report 25042146 (Version 1)
Quarter: 2025Q1

REPORT INFORMATION
  Report Type: Spontaneous
  Country: VN (occurrence: VN)
  Receive Date: 20250305
  Receipt Date: 20250305
  Transmission Date: 20250409
  Serious: Yes (Other)
  Sender: SANDOZ
  Company Number: VN-002147023-NVSC2025VN034565

PATIENT
  Age: 56 Year
  Sex: Female

DRUGS (1)
  1. FULVESTRANT [Suspect]
     Active Substance: FULVESTRANT
     Indication: Breast cancer metastatic
     Route: 065
     Dates: start: 202205, end: 202403

REACTIONS (7)
  - Liver disorder [Unknown]
  - Lung disorder [Unknown]
  - Bone disorder [Unknown]
  - Condition aggravated [Unknown]
  - Tumour pain [Unknown]
  - Hypoaesthesia [Unknown]
  - Neck pain [Unknown]

NARRATIVE: CASE EVENT DATE: 20240301
